FAERS Safety Report 8917326 (Version 1)
Quarter: 2012Q4

REPORT INFORMATION
  Report Type: 
  Country: US (occurrence: US)
  Receive Date: 20121120
  Receipt Date: 20121120
  Transmission Date: 20130627
  Serious: Yes (Other)
  Sender: FDA-Public Use
  Company Number: US-BAYER-2012-119948

PATIENT
  Age: 43 Year
  Sex: Female

DRUGS (4)
  1. BETASERON [Suspect]
     Indication: MS
     Dosage: UNK, QOD
     Route: 058
     Dates: start: 20120707, end: 201207
  2. BETASERON [Suspect]
     Indication: MS
     Dosage: UNK, QOD
     Route: 058
     Dates: start: 201207, end: 201208
  3. BETASERON [Suspect]
     Indication: MS
     Dosage: 0.75 ml, QOD
     Route: 058
     Dates: start: 201208, end: 201208
  4. BETASERON [Suspect]
     Indication: MS
     Dosage: 1 ml, QOD
     Route: 058
     Dates: start: 201208, end: 20120921

REACTIONS (1)
  - Convulsion [Unknown]
